FAERS Safety Report 8314385-7 (Version None)
Quarter: 2012Q2

REPORT INFORMATION
  Report Type: 
  Country: None (occurrence: None)
  Receive Date: 20120426
  Receipt Date: 20120416
  Transmission Date: 20120825
  Serious: Yes (Hospitalization)
  Sender: FDA-Public Use
  Company Number: JP-ROCHE-1037922

PATIENT
  Sex: Female

DRUGS (5)
  1. LOXONIN [Concomitant]
     Indication: PROPHYLAXIS
     Dosage: AT THE THERMACOGENESIS
     Route: 048
     Dates: start: 20110808, end: 20110824
  2. PEGASYS [Suspect]
     Route: 058
     Dates: start: 20110829, end: 20110829
  3. PEGASYS [Suspect]
     Indication: HEPATIC CIRRHOSIS
     Route: 058
     Dates: start: 20110808, end: 20110822
  4. MUCOSTA [Concomitant]
     Indication: PROPHYLAXIS
     Dosage: AT THE THERMACOGENESIS
     Route: 048
     Dates: start: 20110808, end: 20110824
  5. COPEGUS [Suspect]
     Indication: HEPATIC CIRRHOSIS
     Route: 048
     Dates: start: 20110808, end: 20110904

REACTIONS (4)
  - DECREASED APPETITE [None]
  - PLATELET COUNT DECREASED [None]
  - MALAISE [None]
  - DIZZINESS [None]
